FAERS Safety Report 8807079 (Version 1)
Quarter: 2012Q4

REPORT INFORMATION
  Report Type: Report from Study
  Country: DE (occurrence: DE)
  Receive Date: 20120925
  Receipt Date: 20120925
  Transmission Date: 20130627
  Serious: Yes (Hospitalization)
  Sender: FDA-Public Use
  Company Number: DE-ROCHE-1133511

PATIENT
  Sex: Female
  Weight: 73 kg

DRUGS (14)
  1. MABTHERA [Suspect]
     Indication: RHEUMATOID ARTHRITIS
     Route: 065
     Dates: start: 20110106
  2. MABTHERA [Suspect]
     Route: 065
     Dates: start: 20110714
  3. MABTHERA [Suspect]
     Route: 065
     Dates: start: 20120127
  4. MABTHERA [Suspect]
     Route: 065
     Dates: start: 20120713
  5. METOPROLOL [Concomitant]
     Route: 065
  6. ASS100 [Concomitant]
     Route: 065
  7. FUROSEMIDE [Concomitant]
     Route: 065
  8. PIRACETAM [Concomitant]
     Route: 065
  9. L-THYROXIN [Concomitant]
  10. SIMVASTATIN [Concomitant]
     Route: 065
  11. VALORON [Concomitant]
     Route: 065
  12. SYMBICORT [Concomitant]
     Route: 055
  13. SPIRIVA [Concomitant]
     Route: 055
  14. PREDNISOLON [Concomitant]
     Route: 065

REACTIONS (2)
  - Pneumonia [Recovered/Resolved]
  - Pleural effusion [Recovered/Resolved]
